FAERS Safety Report 8547645-5 (Version None)
Quarter: 2012Q3

REPORT INFORMATION
  Report Type: 
  Country: None (occurrence: None)
  Receive Date: 20120727
  Receipt Date: 20111025
  Transmission Date: 20120928
  Serious: Yes (Hospitalization)
  Sender: FDA-Public Use
  Company Number: US-ASTRAZENECA-2011SE64380

PATIENT
  Age: 16 Year
  Sex: Male

DRUGS (3)
  1. SEROQUEL XR [Suspect]
     Route: 048
     Dates: start: 20110720
  2. SEROQUEL XR [Suspect]
     Indication: AUTISM
     Route: 048
     Dates: start: 20110329, end: 20110720
  3. ATIVAN [Concomitant]

REACTIONS (2)
  - OFF LABEL USE [None]
  - CONVULSION [None]
